FAERS Safety Report 19472783 (Version 2)
Quarter: 2022Q2

REPORT INFORMATION
  Report Type: Spontaneous
  Country: US (occurrence: US)
  Receive Date: 20210629
  Receipt Date: 20220426
  Transmission Date: 20220721
  Serious: No
  Sender: FDA-Public Use
  Company Number: US-BAUSCH-BL-2021-017893

PATIENT
  Age: 86 Year
  Sex: Male

DRUGS (3)
  1. DORZOLAMIDE HYDROCHLORIDE\TIMOLOL MALEATE [Suspect]
     Active Substance: DORZOLAMIDE HYDROCHLORIDE\TIMOLOL MALEATE
     Indication: Glaucoma
     Dosage: TAKING FROM 2-4 YEARS, 1 DROP IN EACH EYE IN MORNING AND 1 DROP IN EACH EYE IN NIGHT
     Route: 047
  2. LATANOPROST [Concomitant]
     Active Substance: LATANOPROST
     Indication: Product used for unknown indication
  3. RHOPRESSA [Concomitant]
     Active Substance: NETARSUDIL MESYLATE
     Indication: Product used for unknown indication
     Route: 065

REACTIONS (3)
  - Instillation site pain [Unknown]
  - Extra dose administered [Unknown]
  - Accidental exposure to product [Unknown]
